FAERS Safety Report 5132331-4 (Version None)
Quarter: 2006Q4

REPORT INFORMATION
  Report Type: 
  Country: None (occurrence: None)
  Receive Date: 20061019
  Receipt Date: 20061019
  Transmission Date: 20070319
  Serious: Yes (Hospitalization)
  Sender: FDA-Public Use
  Company Number: None

PATIENT
  Sex: Female
  Weight: 45.3597 kg

DRUGS (1)
  1. ULTRAM [Suspect]
     Indication: PAIN
     Dosage: 200 MG 1X / DAY PO
     Route: 048
     Dates: start: 20060720

REACTIONS (3)
  - AMNESIA [None]
  - HYPERHIDROSIS [None]
  - TREMOR [None]
